FAERS Safety Report 20796705 (Version 16)
Quarter: 2023Q4

REPORT INFORMATION
  Report Type: Report from Study
  Country: CR (occurrence: CR)
  Receive Date: 20220506
  Receipt Date: 20231105
  Transmission Date: 20240110
  Serious: Yes (Hospitalization, Other)
  Sender: FDA-Public Use
  Company Number: CR-NOVARTISPH-NVSC2022CR096742

PATIENT
  Age: 43 Year
  Sex: Female

DRUGS (11)
  1. KISQALI [Suspect]
     Active Substance: RIBOCICLIB
     Indication: Breast cancer
     Dosage: 600 MG, QD (3 TABLETS)
     Route: 048
     Dates: start: 202108, end: 20220321
  2. KISQALI [Suspect]
     Active Substance: RIBOCICLIB
     Indication: Metastases to bone
     Dosage: 400 MG, QD (2 TABLETS)
     Route: 048
  3. KISQALI [Suspect]
     Active Substance: RIBOCICLIB
     Dosage: 600 MG, QD
     Route: 048
     Dates: start: 20220316
  4. KISQALI [Suspect]
     Active Substance: RIBOCICLIB
     Dosage: 2 DOSAGE FORM, QD (2 TABLETS)
     Route: 048
  5. KISQALI [Suspect]
     Active Substance: RIBOCICLIB
     Dosage: 400 MG, QD
     Route: 048
     Dates: start: 20220316
  6. KISQALI [Suspect]
     Active Substance: RIBOCICLIB
     Dosage: 400 MG, QD (AT NIGHT THEN AT THE MORNING)
     Route: 048
     Dates: start: 20220421
  7. KISQALI [Suspect]
     Active Substance: RIBOCICLIB
     Dosage: 400 MG, QD
     Route: 048
     Dates: start: 20230331
  8. KISQALI [Suspect]
     Active Substance: RIBOCICLIB
     Dosage: 400 MG, QD (AT NIGHT THEN AT THE MORNING)
     Route: 048
  9. KISQALI [Suspect]
     Active Substance: RIBOCICLIB
     Dosage: 400 MG, QD
     Route: 048
     Dates: start: 202204
  10. FULVESTRANT [Suspect]
     Active Substance: FULVESTRANT
     Indication: Product used for unknown indication
     Dosage: UNK
     Route: 065
  11. HEPARIN [Concomitant]
     Active Substance: HEPARIN SODIUM
     Indication: Product used for unknown indication
     Dosage: UNK
     Route: 065

REACTIONS (35)
  - Pulmonary embolism [Unknown]
  - Syncope [Unknown]
  - Choking [Recovering/Resolving]
  - Asphyxia [Unknown]
  - Pleural effusion [Unknown]
  - Diabetes mellitus [Unknown]
  - Metastases to lung [Unknown]
  - Arrhythmia [Unknown]
  - Synovial cyst [Unknown]
  - Skin burning sensation [Unknown]
  - Inflammation [Unknown]
  - Skin fissures [Unknown]
  - Skin discolouration [Unknown]
  - Blister [Unknown]
  - Fluid retention [Unknown]
  - White blood cell count increased [Unknown]
  - Condition aggravated [Unknown]
  - Skin disorder [Unknown]
  - Skin warm [Unknown]
  - Insomnia [Unknown]
  - Pruritus [Unknown]
  - Erythema [Unknown]
  - Platelet count decreased [Unknown]
  - Body temperature abnormal [Not Recovered/Not Resolved]
  - Respiratory disorder [Not Recovered/Not Resolved]
  - Hypersensitivity [Unknown]
  - Skin ulcer [Recovered/Resolved]
  - Influenza [Not Recovered/Not Resolved]
  - Nasopharyngitis [Unknown]
  - Illness [Unknown]
  - Rash [Recovering/Resolving]
  - Malaise [Unknown]
  - Fatigue [Unknown]
  - Cough [Not Recovered/Not Resolved]
  - Productive cough [Not Recovered/Not Resolved]

NARRATIVE: CASE EVENT DATE: 20220316
